FAERS Safety Report 18773259 (Version 1)
Quarter: 2021Q1

REPORT INFORMATION
  Report Type: Spontaneous
  Country: US (occurrence: US)
  Receive Date: 20210122
  Receipt Date: 20210122
  Transmission Date: 20210419
  Serious: Yes (Disabling)
  Sender: FDA-Public Use
  Company Number: None

PATIENT
  Age: 20 Year
  Sex: Male
  Weight: 89.1 kg

DRUGS (2)
  1. REMICADE [Suspect]
     Active Substance: INFLIXIMAB
     Indication: CROHN^S DISEASE
     Dosage: ?          OTHER FREQUENCY:EVERY 6 WEEKS;?
     Dates: start: 20160101, end: 20201204
  2. STELARA [Concomitant]
     Active Substance: USTEKINUMAB

REACTIONS (9)
  - Chest pain [None]
  - Rash [None]
  - Renal pain [None]
  - Pyrexia [None]
  - Abdominal pain upper [None]
  - Mouth ulceration [None]
  - Fatigue [None]
  - Headache [None]
  - Arthralgia [None]

NARRATIVE: CASE EVENT DATE: 20201101
